FAERS Safety Report 17892468 (Version 5)
Quarter: 2020Q4

REPORT INFORMATION
  Report Type: Report from Study
  Country: BE (occurrence: BE)
  Receive Date: 20200612
  Receipt Date: 20201201
  Transmission Date: 20210113
  Serious: Yes (Hospitalization, Other)
  Sender: FDA-Public Use
  Company Number: BE-EXELIXIS-XL18420030551

PATIENT
  Age: 47 Year
  Sex: Male
  Weight: 95.3 kg

DRUGS (12)
  1. XL184 [Suspect]
     Active Substance: CABOZANTINIB
     Indication: NON-SMALL CELL LUNG CANCER
     Dosage: 40 MG, QD
     Route: 048
     Dates: start: 20190911, end: 20200603
  2. ZOCOR [Concomitant]
     Active Substance: SIMVASTATIN
  3. PANTOMED [Concomitant]
  4. GAVISCON [Concomitant]
     Active Substance: ALUMINUM HYDROXIDE\MAGNESIUM CARBONATE
  5. TRADONAL [Concomitant]
     Active Substance: TRAMADOL HYDROCHLORIDE
  6. D-VITAL FORTE [Concomitant]
  7. COLOFIBER [Concomitant]
  8. ATEZOLIZUMAB. [Suspect]
     Active Substance: ATEZOLIZUMAB
     Indication: NON-SMALL CELL LUNG CANCER
     Dosage: 1200 MG, Q3WEEKS
     Route: 042
     Dates: start: 20190911, end: 20200520
  9. VITAPANTOL [Concomitant]
  10. XGEVA [Concomitant]
     Active Substance: DENOSUMAB
  11. DAFALGAN [Concomitant]
     Active Substance: ACETAMINOPHEN
  12. IBUPROFEN. [Concomitant]
     Active Substance: IBUPROFEN

REACTIONS (2)
  - Subclavian vein thrombosis [Not Recovered/Not Resolved]
  - Cerebrovascular accident [Not Recovered/Not Resolved]

NARRATIVE: CASE EVENT DATE: 20200604
